FAERS Safety Report 7175353-4 (Version None)
Quarter: 2010Q4

REPORT INFORMATION
  Report Type: 
  Country: None (occurrence: None)
  Receive Date: 20101215
  Receipt Date: 20101215
  Transmission Date: 20110411
  Serious: No
  Sender: FDA-Public Use
  Company Number: None

PATIENT
  Age: 77 Year
  Sex: Female

DRUGS (1)
  1. PROPOXYPHENE NAPSYLATE AND ACETAMINOPHEN [Suspect]
     Indication: PAIN
     Dosage: TAKE 1 TABLET TWICE A DAY AS NEEDED
     Dates: start: 20100601

REACTIONS (3)
  - CHEST PAIN [None]
  - CHILLS [None]
  - PALPITATIONS [None]
